FAERS Safety Report 5040944-3 (Version None)
Quarter: 2006Q2

REPORT INFORMATION
  Report Type: 
  Country: None (occurrence: None)
  Receive Date: 20060630
  Receipt Date: 20060630
  Transmission Date: 20061013
  Serious: Yes (Hospitalization)
  Sender: FDA-Public Use
  Company Number: None

PATIENT
  Sex: Female
  Weight: 106.81 kg

DRUGS (2)
  1. CARBOPLATIN [Suspect]
     Dosage: 595MG
  2. TAXOL [Suspect]
     Dosage: 350 MG

REACTIONS (4)
  - BACTERIAL INFECTION [None]
  - COUGH [None]
  - FATIGUE [None]
  - PYREXIA [None]
